FAERS Safety Report 7803853-X (Version None)
Quarter: 2011Q4

REPORT INFORMATION
  Report Type: 
  Country: None (occurrence: None)
  Receive Date: 20111010
  Receipt Date: 20110927
  Transmission Date: 20120403
  Serious: Yes (Hospitalization, Other)
  Sender: FDA-Public Use
  Company Number: US-RANBAXY-2011RR-48606

PATIENT
  Sex: Male

DRUGS (4)
  1. LEVAQUIN [Suspect]
     Indication: URINARY TRACT INFECTION
     Dosage: 500 MG, UNK
     Route: 048
     Dates: start: 20081201, end: 20081210
  2. LEVAQUIN [Suspect]
     Dosage: 500 MG, UNK
     Route: 048
     Dates: start: 20090220, end: 20090228
  3. MEDROL [Suspect]
     Indication: INFLAMMATION
     Route: 065
  4. CIPROFLOXACIN [Suspect]
     Indication: INFECTION
     Route: 065

REACTIONS (8)
  - TENDON RUPTURE [None]
  - TENDONITIS [None]
  - LIMB INJURY [None]
  - TENDON DISORDER [None]
  - TRIGGER FINGER [None]
  - OSTEOARTHRITIS [None]
  - TENOSYNOVITIS STENOSANS [None]
  - SOFT TISSUE HAEMORRHAGE [None]
